FAERS Safety Report 13645154 (Version 1)
Quarter: 2017Q2

REPORT INFORMATION
  Report Type: Spontaneous
  Country: US (occurrence: US)
  Receive Date: 20170612
  Receipt Date: 20170612
  Transmission Date: 20170830
  Serious: No
  Sender: FDA-Public Use
  Company Number: US-ROCHE-1226736

PATIENT
  Sex: Female

DRUGS (1)
  1. XELODA [Suspect]
     Active Substance: CAPECITABINE
     Indication: NEOPLASM MALIGNANT
     Dosage: FOR 2 WEEKS AND OFF FOR 2 WEEKS
     Route: 065

REACTIONS (3)
  - Erythema [Unknown]
  - Skin fissures [Unknown]
  - Dry skin [Unknown]
